FAERS Safety Report 5894292-X (Version None)
Quarter: 2008Q3

REPORT INFORMATION
  Report Type: 
  Country: None (occurrence: None)
  Receive Date: 20080923
  Receipt Date: 20080414
  Transmission Date: 20090109
  Serious: Yes (Other)
  Sender: FDA-Public Use
  Company Number: US-ASTRAZENECA-2008UW07647

PATIENT
  Age: 42 Year
  Sex: Female

DRUGS (6)
  1. SEROQUEL [Suspect]
     Indication: SCHIZOPHRENIA
     Route: 048
     Dates: start: 20040101
  2. SEROQUEL [Suspect]
     Route: 048
  3. SEROQUEL [Suspect]
     Route: 048
     Dates: start: 20050101
  4. RISPERDAL [Suspect]
  5. GLUCOVANCE [Concomitant]
  6. HYDROCODONE BITARTRATE [Concomitant]

REACTIONS (2)
  - DIABETES MELLITUS [None]
  - TARDIVE DYSKINESIA [None]
